FAERS Safety Report 21300405 (Version 1)
Quarter: 2022Q3

REPORT INFORMATION
  Report Type: Spontaneous
  Country: DE (occurrence: DE)
  Receive Date: 20220907
  Receipt Date: 20220907
  Transmission Date: 20221027
  Serious: Yes (Other)
  Sender: FDA-Public Use
  Company Number: DE-002147023-NVSC2022DE189912

PATIENT
  Age: 49 Year
  Sex: Female

DRUGS (7)
  1. EXEMESTANE [Suspect]
     Active Substance: EXEMESTANE
     Indication: Breast cancer
     Dosage: 25 MILLIGRAM (25 MG, Q28D)
     Route: 048
     Dates: start: 201905, end: 202006
  2. PACLITAXEL [Suspect]
     Active Substance: PACLITAXEL
     Indication: Breast cancer
     Dosage: 80 MILLIGRAM/SQ. METER (80 MG/M2, D1+8+15, Q21D, 4 CYCLES)
     Route: 065
     Dates: start: 2009
  3. CYCLOPHOSPHAMIDE [Suspect]
     Active Substance: CYCLOPHOSPHAMIDE
     Indication: Breast cancer
     Dosage: 600 MILLIGRAM/SQ. METER (600 MG/M2, Q21D, 4 CYCLES)
     Route: 065
     Dates: start: 200906, end: 2009
  4. DENOSUMAB [Suspect]
     Active Substance: DENOSUMAB
     Indication: Breast cancer
     Dosage: 120 MILLIGRAM (120 MG, Q28D)
     Route: 058
     Dates: start: 201905, end: 202006
  5. EPIRUBICIN [Suspect]
     Active Substance: EPIRUBICIN
     Indication: Breast cancer
     Dosage: 90 MILLIGRAM/SQ. METER (90 MG/M2, Q21D, 4 CYCLES)
     Route: 065
     Dates: start: 200906
  6. PALBOCICLIB [Suspect]
     Active Substance: PALBOCICLIB
     Indication: Breast cancer
     Dosage: 125 MILLIGRAM (125 MG, D1-21, Q28D)
     Route: 048
     Dates: start: 201905, end: 202006
  7. TAMOXIFEN [Suspect]
     Active Substance: TAMOXIFEN
     Indication: Breast cancer
     Dosage: 20 MILLIGRAM, ONCE A DAY
     Route: 048
     Dates: start: 2009

REACTIONS (4)
  - Metastases to central nervous system [Not Recovered/Not Resolved]
  - Metastases to liver [Recovering/Resolving]
  - Metastases to lung [Recovered/Resolved]
  - Metastases to bone [Not Recovered/Not Resolved]

NARRATIVE: CASE EVENT DATE: 20190401
